FAERS Safety Report 24705450 (Version 2)
Quarter: 2024Q4

REPORT INFORMATION
  Report Type: Spontaneous
  Country: US (occurrence: US)
  Receive Date: 20241206
  Receipt Date: 20241211
  Transmission Date: 20250115
  Serious: Yes (Hospitalization, Other)
  Sender: RANBAXY
  Company Number: US-SUN PHARMACEUTICAL INDUSTRIES LTD-2024R1-482903

PATIENT
  Age: 21 Year
  Sex: Female

DRUGS (4)
  1. PREDNISONE [Suspect]
     Active Substance: PREDNISONE
     Indication: Lupus nephritis
     Dosage: UNK
     Route: 065
  2. MAGNESIUM SULFATE [Suspect]
     Active Substance: MAGNESIUM SULFATE
     Indication: Pre-eclampsia
     Dosage: UNK
     Route: 065
  3. HYDROXYCHLOROQUINE [Suspect]
     Active Substance: HYDROXYCHLOROQUINE
     Indication: Lupus nephritis
     Dosage: UNK
     Route: 065
  4. BETAMETHASONE [Suspect]
     Active Substance: BETAMETHASONE
     Indication: Pre-eclampsia
     Dosage: UNK
     Route: 065

REACTIONS (4)
  - Pre-eclampsia [Unknown]
  - Exposure during pregnancy [Unknown]
  - Premature delivery [Unknown]
  - Lupus nephritis [Unknown]
